FAERS Safety Report 17419499 (Version 1)
Quarter: 2020Q1

REPORT INFORMATION
  Report Type: Spontaneous
  Country: DE (occurrence: DE)
  Receive Date: 20200214
  Receipt Date: 20200214
  Transmission Date: 20200409
  Serious: Yes (Hospitalization)
  Sender: FDA-Public Use
  Company Number: DE-MYLANLABS-2020M1016075

PATIENT
  Age: 65 Year
  Sex: Female

DRUGS (11)
  1. FLUSPIRILEN [Suspect]
     Active Substance: FLUSPIRILENE
     Indication: PRODUCT USED FOR UNKNOWN INDICATION
     Dosage: 12 MILLIGRAM,12 MG, 1X)
  2. ACETYLSALICYLSAEURE [Concomitant]
     Active Substance: ASPIRIN
     Dosage: 100 MILLIGRAM, QD(100 MG, 1-0-0-0)
  3. CITALOPRAM [Concomitant]
     Active Substance: CITALOPRAM HYDROBROMIDE
     Dosage: 20 MILLIGRAM, QD(20 MG, 1-0-0-0)
  4. METAMIZOL                          /06276701/ [Concomitant]
     Active Substance: METAMIZOLE
     Dosage: UNK UNK, PRN (NK MG, BEI BEDARF)
  5. KALITRANS                          /00716701/ [Concomitant]
     Dosage: UNK (NK MG / WOCHE, 2X)
  6. SIMETICON [Concomitant]
     Dosage: UNK UNK, PRN (NK MG, BEI BEDARF)
  7. TORASEMID [Concomitant]
     Active Substance: TORSEMIDE
     Dosage: 10 MILLIGRAM, QD(10 MG, 1-0-0-0)
  8. RAMIPRIL. [Concomitant]
     Active Substance: RAMIPRIL
     Dosage: 5 MILLIGRAM, QD(2.5 MG, 0-1-1-0)
  9. OMEPRAZOL                          /00661201/ [Concomitant]
     Active Substance: OMEPRAZOLE
     Dosage: 20 MILLIGRAM, QD (20 MG, 1-0-0-0)
  10. NEURODORON [Concomitant]
     Dosage: NK MG, 1-1-1-0
  11. METOPROLOL. [Suspect]
     Active Substance: METOPROLOL
     Indication: PRODUCT USED FOR UNKNOWN INDICATION
     Dosage: 47.5 MILLIGRAM,0.5-0-0-0

REACTIONS (1)
  - Hypertension [Unknown]

NARRATIVE: CASE EVENT DATE: 20191007
